FAERS Safety Report 6866390-5 (Version None)
Quarter: 2010Q3

REPORT INFORMATION
  Report Type: 
  Country: None (occurrence: None)
  Receive Date: 20100722
  Receipt Date: 20100719
  Transmission Date: 20110219
  Serious: Yes (Death)
  Sender: FDA-Public Use
  Company Number: PHHY2010MX47349

PATIENT
  Sex: Female

DRUGS (1)
  1. DIOVAN HCT [Suspect]
     Indication: HYPERTENSION
     Dosage: 1 TABLET (320/12.5 MG), PER DAY
     Dates: start: 20081212

REACTIONS (3)
  - CEREBRAL HAEMORRHAGE [None]
  - POST PROCEDURAL COMPLICATION [None]
  - SURGERY [None]
